FAERS Safety Report 9639152 (Version 1)
Quarter: 2013Q4

REPORT INFORMATION
  Report Type: Spontaneous
  Country: US (occurrence: None)
  Receive Date: 20131021
  Receipt Date: 20131021
  Transmission Date: 20140711
  Serious: Yes (Other)
  Sender: FDA-Public Use
  Company Number: ADR-2013-01886

PATIENT
  Sex: Male

DRUGS (6)
  1. BACLOFEN [Suspect]
  2. FENTANYL [Suspect]
  3. MARCAINE [Suspect]
  4. MS CONTIN [Suspect]
  5. DILAUDID [Suspect]
  6. TORADOL [Suspect]

REACTIONS (7)
  - Neuralgia [None]
  - Pain in extremity [None]
  - Cold sweat [None]
  - Withdrawal syndrome [None]
  - Fall [None]
  - Back disorder [None]
  - Condition aggravated [None]
